FAERS Safety Report 15975297 (Version 1)
Quarter: 2019Q1

REPORT INFORMATION
  Report Type: Spontaneous
  Country: US (occurrence: US)
  Receive Date: 20190218
  Receipt Date: 20190218
  Transmission Date: 20190418
  Serious: Yes (Other)
  Sender: FDA-Public Use
  Company Number: US-OCTA-GENA00619US

PATIENT
  Age: 19 Year
  Sex: Male
  Weight: 67.6 kg

DRUGS (1)
  1. NUWIQ [Suspect]
     Active Substance: ANTIHEMOPHILIC FACTOR, HUMAN RECOMBINANT
     Indication: FACTOR VIII DEFICIENCY
     Route: 042
     Dates: start: 201806, end: 201812

REACTIONS (9)
  - Confusional state [Unknown]
  - Disorientation [Unknown]
  - Dyspnoea [Unknown]
  - Abnormal behaviour [Unknown]
  - Tic [Unknown]
  - Disturbance in attention [Unknown]
  - Abdominal discomfort [Unknown]
  - Dry mouth [Unknown]
  - Feeling abnormal [Unknown]

NARRATIVE: CASE EVENT DATE: 201808
